FAERS Safety Report 7433744-8 (Version None)
Quarter: 2011Q2

REPORT INFORMATION
  Report Type: 
  Country: None (occurrence: None)
  Receive Date: 20110424
  Receipt Date: 20110419
  Transmission Date: 20111010
  Serious: No
  Sender: FDA-Public Use
  Company Number: US-B.I. PHARMACEUTICALS,INC./RIDGEFIELD-2011-BP-06197BP

PATIENT
  Age: 85 Year
  Sex: Male

DRUGS (9)
  1. PRADAXA [Suspect]
     Indication: DRUG THERAPY CHANGED
  2. LISINOPRIL [Concomitant]
  3. PRADAXA [Suspect]
     Indication: ATRIAL FIBRILLATION
     Dosage: 300 MG
     Route: 048
     Dates: start: 20110201
  4. SIMVASTATIN [Concomitant]
  5. POTASSIUM CHLORIDE [Concomitant]
  6. METAMUCIL-2 [Concomitant]
  7. MULTIVITAMIN [Concomitant]
  8. LASIX [Concomitant]
  9. DILTIAZEM [Concomitant]

REACTIONS (7)
  - ERUCTATION [None]
  - ARTHRALGIA [None]
  - ABDOMINAL PAIN UPPER [None]
  - ASTHENIA [None]
  - OESOPHAGEAL PAIN [None]
  - FEELING ABNORMAL [None]
  - FATIGUE [None]
